FAERS Safety Report 17842415 (Version 2)
Quarter: 2020Q2

REPORT INFORMATION
  Report Type: Report from Study
  Country: US (occurrence: US)
  Receive Date: 20200529
  Receipt Date: 20200612
  Transmission Date: 20200714
  Serious: Yes (Other)
  Sender: FDA-Public Use
  Company Number: US-EMD SERONO-9112676

PATIENT
  Age: 69 Year
  Sex: Male

DRUGS (2)
  1. MAVENCLAD [Suspect]
     Active Substance: CLADRIBINE
     Dosage: FIRST YEAR SECOND CYCLE.
     Route: 048
     Dates: start: 20190911, end: 20190915
  2. MAVENCLAD [Suspect]
     Active Substance: CLADRIBINE
     Indication: SECONDARY PROGRESSIVE MULTIPLE SCLEROSIS
     Dosage: FIRST YEAR FIRST CYCLE.
     Route: 048
     Dates: start: 20190812, end: 20190816

REACTIONS (17)
  - Back pain [Not Recovered/Not Resolved]
  - Migraine [Unknown]
  - Hypoaesthesia [Unknown]
  - Post-traumatic stress disorder [Unknown]
  - Obsessive thoughts [Unknown]
  - Fatigue [Unknown]
  - Feeling abnormal [Not Recovered/Not Resolved]
  - Spinal pain [Not Recovered/Not Resolved]
  - Cognitive disorder [Unknown]
  - Multiple sclerosis [Unknown]
  - Pain [Unknown]
  - Therapeutic response decreased [Unknown]
  - Burning sensation [Unknown]
  - Insomnia [Unknown]
  - Cerebrovascular accident [Unknown]
  - Pain in extremity [Unknown]
  - Muscle spasms [Unknown]

NARRATIVE: CASE EVENT DATE: 201908
